FAERS Safety Report 9422844 (Version 1)
Quarter: 2013Q3

REPORT INFORMATION
  Report Type: Spontaneous
  Country: US (occurrence: US)
  Receive Date: 20130726
  Receipt Date: 20130726
  Transmission Date: 20140515
  Serious: Yes (Other)
  Sender: FDA-Public Use
  Company Number: US-FRI-1000046223

PATIENT
  Sex: Female
  Weight: 76.4 kg

DRUGS (1)
  1. SAVELLA [Suspect]
     Indication: FIBROMYALGIA
     Dates: start: 201110, end: 201111

REACTIONS (2)
  - Fasciitis [Recovering/Resolving]
  - Tenosynovitis [Recovering/Resolving]
